FAERS Safety Report 16020310 (Version 1)
Quarter: 2019Q1

REPORT INFORMATION
  Report Type: Spontaneous
  Country: PL (occurrence: PL)
  Receive Date: 20190228
  Receipt Date: 20190228
  Transmission Date: 20190418
  Serious: Yes (Death, Life-Threatening)
  Sender: FDA-Public Use
  Company Number: PHHY2019PL042236

PATIENT
  Age: 67 Year
  Sex: Female
  Weight: 70 kg

DRUGS (21)
  1. IPP [Suspect]
     Active Substance: PANTOPRAZOLE SODIUM
     Indication: PRODUCT USED FOR UNKNOWN INDICATION
     Route: 065
  2. GENSULIN R [Suspect]
     Active Substance: INSULIN HUMAN
     Dosage: 15 IU, QD
     Route: 042
     Dates: start: 20181119, end: 20181119
  3. HEPA-MERZ (ORNITHINE ASPARTATE) [Suspect]
     Active Substance: ORNITHINE ASPARTATE
     Indication: PRODUCT USED FOR UNKNOWN INDICATION
     Route: 065
  4. GENSULIN R [Suspect]
     Active Substance: INSULIN HUMAN
     Indication: DIABETES MELLITUS
     Dosage: 12.5 IU, QD
     Route: 042
     Dates: start: 20181116, end: 20181116
  5. GLUCOSE [Suspect]
     Active Substance: DEXTROSE
     Dosage: 500 ML, BID
     Route: 042
     Dates: start: 20181118, end: 20181125
  6. MEMOTROPIL [Suspect]
     Active Substance: PIRACETAM
     Indication: PRODUCT USED FOR UNKNOWN INDICATION
     Route: 065
  7. GENSULIN R [Suspect]
     Active Substance: INSULIN HUMAN
     Dosage: 12.5 IU, QD
     Route: 042
     Dates: start: 20181123, end: 20181123
  8. GENSULIN R [Suspect]
     Active Substance: INSULIN HUMAN
     Dosage: 15 IU, QD (INFUSION OF INSULIN CONTINUED)
     Route: 042
     Dates: start: 20181125, end: 20181125
  9. GENSULIN R [Suspect]
     Active Substance: INSULIN HUMAN
     Dosage: 15 IU, QD
     Route: 042
     Dates: start: 20181117, end: 20181117
  10. GENSULIN R [Suspect]
     Active Substance: INSULIN HUMAN
     Dosage: 20 IU, QD
     Route: 042
     Dates: start: 20181122, end: 20181122
  11. GENSULIN R [Suspect]
     Active Substance: INSULIN HUMAN
     Dosage: 1 IU, QH (INFUSION OF INSULIN BETWEEN 2 AND 7)
     Route: 042
     Dates: start: 20181123, end: 20181123
  12. GLUCOSE [Suspect]
     Active Substance: DEXTROSE
     Indication: PRODUCT USED FOR UNKNOWN INDICATION
     Dosage: 500 ML, BID
     Route: 042
     Dates: start: 20181116, end: 20181116
  13. GLUCOSE [Suspect]
     Active Substance: DEXTROSE
     Dosage: 500 ML, TID
     Route: 042
     Dates: start: 20181117, end: 20181117
  14. MORPHINE [Suspect]
     Active Substance: MORPHINE
     Indication: PRODUCT USED FOR UNKNOWN INDICATION
     Dosage: 145 MG, QD
     Route: 042
     Dates: start: 20181124, end: 20181124
  15. VANCOMYCIN [Suspect]
     Active Substance: VANCOMYCIN
     Indication: NOSOCOMIAL INFECTION
     Route: 065
  16. GENSULIN R [Suspect]
     Active Substance: INSULIN HUMAN
     Dosage: 56 IU, QD (56 UNITS OF INSULIN,2 UNITS PER HOUR)
     Route: 042
     Dates: start: 20181124, end: 20181124
  17. IMIPENEM [Suspect]
     Active Substance: IMIPENEM
     Indication: NOSOCOMIAL INFECTION
     Route: 065
  18. GENSULIN R [Suspect]
     Active Substance: INSULIN HUMAN
     Dosage: 12.5 IU, QD
     Route: 042
     Dates: start: 20181118, end: 20181118
  19. GENSULIN R [Suspect]
     Active Substance: INSULIN HUMAN
     Dosage: 24.5 IU, QD
     Route: 042
     Dates: start: 20181120, end: 20181120
  20. DEXAVEN [Suspect]
     Active Substance: DEXAMETHASONE
     Indication: PRODUCT USED FOR UNKNOWN INDICATION
     Route: 065
  21. GENSULIN R [Suspect]
     Active Substance: INSULIN HUMAN
     Dosage: 25 IU, QD
     Route: 042
     Dates: start: 20181121, end: 20181121

REACTIONS (12)
  - Acidosis [Fatal]
  - Hypoglycaemia [Fatal]
  - Loss of consciousness [Fatal]
  - Tachyarrhythmia [Fatal]
  - Blood pressure decreased [Fatal]
  - Central nervous system injury [Fatal]
  - Prescribed overdose [Fatal]
  - Chromaturia [Fatal]
  - Hyperchloraemia [Fatal]
  - Heart rate increased [Fatal]
  - Hypoxia [Fatal]
  - Hyperkalaemia [Fatal]

NARRATIVE: CASE EVENT DATE: 20181124
